FAERS Safety Report 9763247 (Version 1)
Quarter: 2013Q4

REPORT INFORMATION
  Report Type: Spontaneous
  Country: US (occurrence: US)
  Receive Date: 20131216
  Receipt Date: 20131216
  Transmission Date: 20140711
  Serious: No
  Sender: FDA-Public Use
  Company Number: US-BIOGENIDEC-2013BI104010

PATIENT
  Age: 54 Year
  Sex: Female
  Weight: 54 kg

DRUGS (9)
  1. TECFIDERA [Suspect]
     Indication: PRODUCT USED FOR UNKNOWN INDICATION
     Route: 048
     Dates: start: 20131007, end: 20131010
  2. NEURONTIN [Concomitant]
  3. BACLOFEN [Concomitant]
  4. LEVOTHYROXIN [Concomitant]
  5. NEXIUM [Concomitant]
  6. ATORVASTATIN [Concomitant]
  7. ASA [Concomitant]
  8. D3 [Concomitant]
  9. TOPIRAMATE [Concomitant]

REACTIONS (1)
  - Abdominal pain upper [Unknown]
